FAERS Safety Report 19032601 (Version 1)
Quarter: 2021Q1

REPORT INFORMATION
  Report Type: Report from Study
  Country: BR (occurrence: BR)
  Receive Date: 20210319
  Receipt Date: 20210319
  Transmission Date: 20210420
  Serious: Yes (Hospitalization, Other)
  Sender: FDA-Public Use
  Company Number: BR-JNJFOC-20210327123

PATIENT
  Age: 6 Decade
  Sex: Female
  Weight: 83 kg

DRUGS (2)
  1. INFLIXIMAB, RECOMBINANT [Suspect]
     Active Substance: INFLIXIMAB
     Indication: COLITIS ULCERATIVE
  2. INFLIXIMAB, RECOMBINANT [Suspect]
     Active Substance: INFLIXIMAB
     Indication: COLITIS
     Route: 042
     Dates: start: 20200911

REACTIONS (5)
  - COVID-19 [Unknown]
  - Venous injury [Unknown]
  - Kidney infection [Recovered/Resolved]
  - Vomiting [Unknown]
  - Hepatic enzyme abnormal [Recovered/Resolved]
